FAERS Safety Report 22048756 (Version 4)
Quarter: 2023Q2

REPORT INFORMATION
  Report Type: Report from Study
  Country: US (occurrence: US)
  Receive Date: 20230301
  Receipt Date: 20230411
  Transmission Date: 20230721
  Serious: Yes (Other)
  Sender: FDA-Public Use
  Company Number: US-002147023-NVSC2023US042646

PATIENT
  Age: 74 Year
  Sex: Female

DRUGS (3)
  1. LEQVIO [Suspect]
     Active Substance: INCLISIRAN SODIUM
     Indication: Stenosis
     Dosage: 284 MG, (OTHER FREQUENCY)
     Route: 058
     Dates: start: 20220209
  2. LEQVIO [Suspect]
     Active Substance: INCLISIRAN SODIUM
     Dosage: UNK
     Route: 058
     Dates: start: 20220527
  3. LEQVIO [Suspect]
     Active Substance: INCLISIRAN SODIUM
     Dosage: UNK
     Route: 065
     Dates: end: 20230303

REACTIONS (2)
  - Hepatic cancer [Unknown]
  - Amyloidosis [Unknown]

NARRATIVE: CASE EVENT DATE: 20230303
